FAERS Safety Report 7788278-8 (Version None)
Quarter: 2011Q3

REPORT INFORMATION
  Report Type: 
  Country: None (occurrence: None)
  Receive Date: 20110930
  Receipt Date: 20110920
  Transmission Date: 20111222
  Serious: Yes (Other)
  Sender: FDA-Public Use
  Company Number: ES-JNJFOC-20110906082

PATIENT
  Age: 25 Year
  Sex: Female

DRUGS (2)
  1. CONCERTA [Suspect]
     Indication: PRODUCT USED FOR UNKNOWN INDICATION
     Route: 048
     Dates: start: 20110801
  2. CONCERTA [Suspect]
     Route: 048
     Dates: start: 20110629

REACTIONS (2)
  - BULIMIA NERVOSA [None]
  - HYPERSOMNIA [None]
